FAERS Safety Report 13545125 (Version 2)
Quarter: 2017Q2

REPORT INFORMATION
  Report Type: Spontaneous
  Country: DE (occurrence: DE)
  Receive Date: 20170515
  Receipt Date: 20170621
  Transmission Date: 20170830
  Serious: Yes (Other)
  Sender: FDA-Public Use
  Company Number: DE-B.I. PHARMACEUTICALS,INC./RIDGEFIELD-2017-BI-026421

PATIENT
  Age: 55 Year
  Sex: Female

DRUGS (2)
  1. GILOTRIF [Suspect]
     Active Substance: AFATINIB
     Indication: BRONCHIAL CARCINOMA
     Route: 065
     Dates: start: 2015, end: 201704
  2. VITAMIN D [Concomitant]
     Active Substance: CHOLECALCIFEROL
     Indication: PRODUCT USED FOR UNKNOWN INDICATION
     Route: 065

REACTIONS (11)
  - Diarrhoea [Recovering/Resolving]
  - Facial paresis [Recovered/Resolved]
  - Hypoacusis [Recovered/Resolved]
  - Paraesthesia [Recovered/Resolved]
  - Migraine [Recovering/Resolving]
  - Paraneoplastic syndrome [Recovering/Resolving]
  - Immunology test abnormal [Unknown]
  - Aphasia [Recovered/Resolved]
  - Neuritis [Recovering/Resolving]
  - Metastases to bone [Recovering/Resolving]
  - Nail bed disorder [Recovering/Resolving]
